FAERS Safety Report 6063807-3 (Version None)
Quarter: 2009Q1

REPORT INFORMATION
  Report Type: 
  Country: None (occurrence: None)
  Receive Date: 20090204
  Receipt Date: 20090126
  Transmission Date: 20090719
  Serious: Yes (Other)
  Sender: FDA-Public Use
  Company Number: CH-JNJFOC-20090105900

PATIENT
  Age: 81 Year
  Sex: Female

DRUGS (8)
  1. HALDOL [Suspect]
     Route: 030
  2. HALDOL [Suspect]
     Route: 030
  3. HALDOL [Suspect]
     Indication: DELIRIUM
     Route: 030
  4. ZOLOFT [Suspect]
     Route: 048
  5. ZOLOFT [Suspect]
     Indication: AFFECTIVE DISORDER
     Route: 048
  6. AMLODIPINE [Concomitant]
     Indication: ESSENTIAL HYPERTENSION
     Route: 048
  7. SORTIS [Concomitant]
     Route: 048
  8. TEMESTA [Concomitant]
     Route: 048

REACTIONS (2)
  - MUSCLE RIGIDITY [None]
  - SEROTONIN SYNDROME [None]
